FAERS Safety Report 6469298-2 (Version None)
Quarter: 2009Q4

REPORT INFORMATION
  Report Type: 
  Country: None (occurrence: None)
  Receive Date: 20091203
  Receipt Date: 20071022
  Transmission Date: 20100525
  Serious: Yes (Other)
  Sender: FDA-Public Use
  Company Number: JP-ELI_LILLY_AND_COMPANY-JP200709003410

PATIENT
  Sex: Female

DRUGS (2)
  1. EVISTA [Suspect]
     Indication: OSTEOPOROSIS
     Dosage: 60 MG, DAILY (1/D)
     Route: 048
     Dates: start: 20070702, end: 20071001
  2. LOXONIN [Concomitant]
     Indication: BACK PAIN
     Dosage: 2 D/F, DAILY (1/D)
     Route: 048
     Dates: start: 20070702

REACTIONS (2)
  - DYSGEUSIA [None]
  - NASOPHARYNGITIS [None]
